FAERS Safety Report 24294895 (Version 1)
Quarter: 2024Q3

REPORT INFORMATION
  Report Type: Spontaneous
  Country: US (occurrence: US)
  Receive Date: 20240907
  Receipt Date: 20240907
  Transmission Date: 20241017
  Serious: No
  Sender: AIMMUNE
  Company Number: US-AIMMUNE THERAPEUTICS, INC.-2024AIMT00298

PATIENT

DRUGS (2)
  1. ZENPEP [Suspect]
     Active Substance: PANCRELIPASE AMYLASE\PANCRELIPASE LIPASE\PANCRELIPASE PROTEASE
     Indication: Pancreatic failure
     Dosage: LIPASE 40K UNITS, PROTEASE 126K, AMYLASE 168K, 2WITH EACH MEAL AND ONE WITH EACH SNACK (AMOUNTS OF S
     Route: 048
     Dates: start: 202310
  2. ZENPEP [Suspect]
     Active Substance: PANCRELIPASE AMYLASE\PANCRELIPASE LIPASE\PANCRELIPASE PROTEASE
     Dosage: LIPASE 40K UNITS, PROTEASE 126K, AMYLASE 168K, 2WITH EACH MEAL AND ONE WITH EACH SNACK (AMOUNTS OF S
     Route: 048

REACTIONS (4)
  - Pain [Not Recovered/Not Resolved]
  - Pancreatic disorder [Not Recovered/Not Resolved]
  - Arthritis [Not Recovered/Not Resolved]
  - Weight decreased [Not Recovered/Not Resolved]

NARRATIVE: CASE EVENT DATE: 20231001
